FAERS Safety Report 6692823-3 (Version None)
Quarter: 2010Q2

REPORT INFORMATION
  Report Type: 
  Country: None (occurrence: None)
  Receive Date: 20100419
  Receipt Date: 20100408
  Transmission Date: 20101027
  Serious: Yes (Hospitalization)
  Sender: FDA-Public Use
  Company Number: DSA_42920_2010

PATIENT
  Age: 81 Year
  Sex: Male

DRUGS (10)
  1. ENALAPRIL MALEATE [Suspect]
     Indication: HYPERTENSION
     Dosage: (10 MG QD ORAL)
     Route: 048
     Dates: end: 20090203
  2. FURORESE                   (FURORESE - FUROSEMIDE) (NOT SPECIFIED) [Suspect]
     Indication: RENAL IMPAIRMENT
     Dosage: (125 MG QD ORAL)
     Route: 048
     Dates: start: 20081001
  3. SIMVAHEXAL         (SIMVAHEXAL - SIMVASTATIN) [Suspect]
     Indication: CORONARY ARTERY DISEASE
     Dosage: (40 MG QD ORAL)
     Route: 048
     Dates: start: 20070901, end: 20090203
  4. XIPAMIDE (XIPAMIDE) [Suspect]
     Indication: HYPERTENSION
     Dosage: (20 MG QD ORAL)
     Route: 048
     Dates: start: 20081001
  5. INSULIN HUMAN [Concomitant]
  6. ASPIRIN [Concomitant]
  7. ESCOR [Concomitant]
  8. OMEPRAZOLE [Concomitant]
  9. BISOPROLOL FUMARATE [Concomitant]
  10. FERRO SANOL              /00023514/ [Concomitant]

REACTIONS (2)
  - ACUTE PRERENAL FAILURE [None]
  - RHABDOMYOLYSIS [None]
